FAERS Safety Report 10245059 (Version 1)
Quarter: 2014Q2

REPORT INFORMATION
  Report Type: Spontaneous
  Country: US (occurrence: US)
  Receive Date: 20140618
  Receipt Date: 20140618
  Transmission Date: 20141212
  Serious: Yes (Hospitalization, Other)
  Sender: FDA-Public Use
  Company Number: US-ACTAVIS-2014-13723

PATIENT
  Age: 54 Year
  Sex: Female

DRUGS (4)
  1. TOPIRAMATE (WATSON LABORATORIES) [Suspect]
     Indication: HEMIPLEGIC MIGRAINE
     Dosage: 100 MG, BID
     Route: 065
  2. FLUNARIZINE (UNKNOWN) [Suspect]
     Indication: HEMIPLEGIC MIGRAINE
     Dosage: 5 MG, DAILY
     Route: 048
  3. VALPROIC ACID [Concomitant]
     Indication: CONVULSION
     Dosage: UNK
     Route: 042
  4. ESCITALOPRAM [Concomitant]
     Indication: MAJOR DEPRESSION
     Dosage: 20 MG, DAILY
     Route: 065

REACTIONS (3)
  - Suicidal ideation [Recovered/Resolved]
  - Depression [Recovering/Resolving]
  - Depression [None]
